FAERS Safety Report 7096056-0 (Version None)
Quarter: 2010Q4

REPORT INFORMATION
  Report Type: 
  Country: None (occurrence: None)
  Receive Date: 20101101
  Receipt Date: 20101015
  Transmission Date: 20110411
  Serious: Yes (Hospitalization)
  Sender: FDA-Public Use
  Company Number: 2010US004458

PATIENT
  Age: 7 Year
  Sex: Male
  Weight: 11.7935 kg

DRUGS (1)
  1. AMBISOME [Suspect]
     Indication: PRODUCT USED FOR UNKNOWN INDICATION
     Dosage: 3 MG/KG, TOTAL DOSE, IV NOS
     Route: 042
     Dates: start: 20090415, end: 20090415

REACTIONS (3)
  - AURICULAR SWELLING [None]
  - DRUG HYPERSENSITIVITY [None]
  - ERYTHEMA [None]
